FAERS Safety Report 4865961-5 (Version None)
Quarter: 2005Q4

REPORT INFORMATION
  Report Type: 
  Country: None (occurrence: None)
  Receive Date: 20051226
  Receipt Date: 20051130
  Transmission Date: 20060501
  Serious: Yes (Hospitalization)
  Sender: FDA-Public Use
  Company Number: FR-AVENTIS-200513942FR

PATIENT
  Age: 71 Year
  Sex: Male

DRUGS (9)
  1. TAXOTERE [Suspect]
     Indication: PROSTATE CANCER
     Route: 042
     Dates: start: 20050725, end: 20050725
  2. RADIOTHERAPY [Suspect]
     Indication: PROSTATE CANCER
     Dates: start: 20050711, end: 20050729
  3. CASODEX [Suspect]
     Indication: PROSTATE CANCER
     Dates: start: 20050704, end: 20050801
  4. ZOLADEX [Suspect]
     Indication: PROSTATE CANCER
     Dates: start: 20050711, end: 20050711
  5. TAHOR [Concomitant]
  6. KARDEGIC [Concomitant]
  7. BI-TILDIEM [Concomitant]
  8. ZOLADEX [Concomitant]
     Dates: start: 20050712, end: 20050712
  9. CASODEX [Concomitant]
     Dates: start: 20050704, end: 20050704

REACTIONS (4)
  - ABDOMINAL PAIN [None]
  - DEHYDRATION [None]
  - DYSURIA [None]
  - PROCTITIS [None]
